FAERS Safety Report 12645294 (Version 2)
Quarter: 2017Q2

REPORT INFORMATION
  Report Type: Spontaneous
  Country: CH (occurrence: CH)
  Receive Date: 20160811
  Receipt Date: 20170531
  Transmission Date: 20170830
  Serious: Yes (Life-Threatening, Hospitalization, Other)
  Sender: FDA-Public Use
  Company Number: PHHY2015CH024308

PATIENT
  Sex: Female

DRUGS (2)
  1. ALLOPUR [Suspect]
     Active Substance: ALLOPURINOL
     Indication: GOUT
     Dosage: 300 MG, QD
     Route: 065
     Dates: start: 201501
  2. ECOFENAC [Concomitant]
     Active Substance: DICLOFENAC SODIUM
     Indication: PRODUCT USED FOR UNKNOWN INDICATION
     Dosage: 150 MG, QD
     Route: 065

REACTIONS (20)
  - Skin burning sensation [Recovering/Resolving]
  - Burning sensation mucosal [Recovering/Resolving]
  - Skin erosion [Unknown]
  - Condition aggravated [Not Recovered/Not Resolved]
  - Inflammatory marker increased [Recovering/Resolving]
  - Skin exfoliation [Unknown]
  - Pyrexia [Recovering/Resolving]
  - Influenza like illness [Unknown]
  - Purulence [Recovering/Resolving]
  - Tooth loss [Unknown]
  - Slow speech [Unknown]
  - Visual impairment [Not Recovered/Not Resolved]
  - Muscle atrophy [Recovering/Resolving]
  - Mucosal necrosis [Recovering/Resolving]
  - Skin haemorrhage [Recovering/Resolving]
  - Myalgia [Unknown]
  - Toxic epidermal necrolysis [Recovering/Resolving]
  - Lacrimal structure injury [Not Recovered/Not Resolved]
  - Dyspnoea [Recovering/Resolving]
  - Lacrimation decreased [Not Recovered/Not Resolved]
